FAERS Safety Report 16085031 (Version 2)
Quarter: 2019Q1

REPORT INFORMATION
  Report Type: Report from Study
  Country: US (occurrence: US)
  Receive Date: 20190318
  Receipt Date: 20190321
  Transmission Date: 20190418
  Serious: Yes (Other)
  Sender: FDA-Public Use
  Company Number: US-ELI_LILLY_AND_COMPANY-US201903004992

PATIENT
  Sex: Male

DRUGS (2)
  1. OLANZAPINE PAMOATE [Suspect]
     Active Substance: OLANZAPINE PAMOATE
     Indication: SCHIZOPHRENIA
     Dosage: 300 MG, 2/M
     Route: 030
     Dates: start: 201812
  2. IBUPROFEN. [Concomitant]
     Active Substance: IBUPROFEN
     Dosage: 80 MG, UNKNOWN

REACTIONS (1)
  - Schizophrenia [Unknown]
